FAERS Safety Report 16428018 (Version 2)
Quarter: 2019Q3

REPORT INFORMATION
  Report Type: Spontaneous
  Country: US (occurrence: US)
  Receive Date: 20190613
  Receipt Date: 20190717
  Transmission Date: 20191004
  Serious: No
  Sender: FDA-Public Use
  Company Number: US-SA-2019SA158228

PATIENT
  Age: 60 Year
  Sex: Male

DRUGS (16)
  1. MAGNESIUM [Concomitant]
     Active Substance: MAGNESIUM
     Dosage: 1 TABLET BY MOUTH TWICE DAILY
     Route: 048
     Dates: start: 20190311
  2. CALCIUM [Concomitant]
     Active Substance: CALCIUM
     Dosage: 0.5 TABLET BY MOUTH EVERY OTHER DAY
     Route: 048
     Dates: start: 20190311
  3. FINASTERIDE. [Concomitant]
     Active Substance: FINASTERIDE
     Dosage: 5 MG, QD
     Route: 048
     Dates: start: 20171109
  4. MIRALAX [Concomitant]
     Active Substance: POLYETHYLENE GLYCOL 3350
     Dosage: 5 G, QD
     Route: 048
     Dates: start: 20170131
  5. FABRAZYME [Suspect]
     Active Substance: AGALSIDASE BETA
     Indication: FABRY^S DISEASE
     Dosage: 80 MG, QOW
     Route: 041
     Dates: start: 20170201
  6. MULTIVITAMINS [VITAMINS NOS] [Concomitant]
     Active Substance: VITAMINS
     Dosage: 1 TABLET BY MOUTH, QD
     Route: 048
     Dates: start: 20170131
  7. NORTRIPTYLINE [Concomitant]
     Active Substance: NORTRIPTYLINE
     Dosage: 2 CAPSULES EVERY EVENING
     Route: 048
     Dates: start: 20190417
  8. VITAMIN D3 [Concomitant]
     Active Substance: CHOLECALCIFEROL
     Dosage: 1 CAPSULE BY MOUTH DAILY
     Route: 048
     Dates: start: 20190325
  9. STERILE WATER [Concomitant]
     Active Substance: WATER
     Dosage: 1 EACH IV
     Route: 042
     Dates: start: 20190225
  10. ASPIRIN [ACETYLSALICYLIC ACID] [Concomitant]
     Active Substance: ASPIRIN
     Dosage: 1 TABLET BY MOUTH, QD
     Route: 048
     Dates: start: 20170131
  11. SODIUM CHLORIDE. [Concomitant]
     Active Substance: SODIUM CHLORIDE
     Indication: FLUSHING
     Dosage: 0.9 %, UNK
     Route: 042
     Dates: start: 20190225
  12. EPINEPHRINE. [Concomitant]
     Active Substance: EPINEPHRINE
     Indication: ANAPHYLACTIC REACTION
     Dosage: 0.3 MG, PRN
     Route: 030
     Dates: start: 20190225
  13. STOOL SOFTENER (DOCUSATE) [Concomitant]
     Active Substance: DOCUSATE
     Dosage: 1 CAPSULE BY MOUTH, QD
     Route: 048
     Dates: start: 20170131
  14. NORMAL SALINE [Concomitant]
     Active Substance: SODIUM CHLORIDE
     Dosage: 0.9 %, UNK
     Route: 042
     Dates: start: 20190225
  15. CIALIS [Concomitant]
     Active Substance: TADALAFIL
     Dosage: 1 DF, QD
     Route: 048
     Dates: start: 20171107
  16. LOSARTAN. [Concomitant]
     Active Substance: LOSARTAN
     Dosage: 1 TABLET BY MOUTH, QD
     Route: 048
     Dates: start: 20170131

REACTIONS (1)
  - Headache [Unknown]
